FAERS Safety Report 8349309-X (Version None)
Quarter: 2012Q2

REPORT INFORMATION
  Report Type: 
  Country: None (occurrence: None)
  Receive Date: 20120510
  Receipt Date: 20120503
  Transmission Date: 20120825
  Serious: Yes (Other)
  Sender: FDA-Public Use
  Company Number: GB-UCBSA-056756

PATIENT
  Age: 32 Year
  Sex: Female
  Weight: 99 kg

DRUGS (5)
  1. KEPPRA [Suspect]
     Indication: EPILEPSY
     Route: 048
     Dates: start: 20120402, end: 20120101
  2. LAMOTRIGINE [Concomitant]
     Indication: EPILEPSY
     Route: 048
     Dates: start: 20020101
  3. FLUTICASONE PROPIONATE/SALMETEROL [Concomitant]
     Indication: ASTHMA
     Route: 055
     Dates: start: 20110101
  4. SERTRALINE HYDROCHLORIDE [Concomitant]
     Indication: OBSESSIVE-COMPULSIVE DISORDER
     Route: 048
     Dates: start: 20060101
  5. FOLIC ACID [Concomitant]
     Indication: PREGNANCY
     Route: 048
     Dates: start: 20120101

REACTIONS (9)
  - DIZZINESS [None]
  - HEADACHE [None]
  - NECK PAIN [None]
  - SPEECH DISORDER [None]
  - AMNESIA [None]
  - RHINITIS [None]
  - PREGNANCY [None]
  - SOMNOLENCE [None]
  - CONFUSIONAL STATE [None]
